FAERS Safety Report 8297088-7 (Version None)
Quarter: 2012Q2

REPORT INFORMATION
  Report Type: 
  Country: None (occurrence: None)
  Receive Date: 20120417
  Receipt Date: 20120417
  Transmission Date: 20120825
  Serious: Yes (Hospitalization)
  Sender: FDA-Public Use
  Company Number: None

PATIENT
  Sex: Female
  Weight: 57.9 kg

DRUGS (11)
  1. GLUCOPHAGE [Concomitant]
  2. COSOPT OPHTHALMIC GEL [Concomitant]
  3. MS CONTIN ER [Concomitant]
  4. GLUCOTROL [Concomitant]
  5. CALCIUM OXIDE [Concomitant]
  6. RECLAST [Suspect]
     Indication: OSTEOPOROSIS
     Dosage: 1 BOTTLE ONCE IV ; 5 MG
     Route: 042
     Dates: start: 20120412
  7. ALPHAGAN O.1% OPHTHALMIC GEL [Concomitant]
  8. PRILOSEC [Concomitant]
  9. MEVACOR [Concomitant]
  10. GABAPENTIN 600 [Concomitant]
  11. MULTI-VITAMIN [Concomitant]

REACTIONS (3)
  - AMNESIA [None]
  - BODY TEMPERATURE INCREASED [None]
  - ASTHENIA [None]
